FAERS Safety Report 17324281 (Version 1)
Quarter: 2020Q1

REPORT INFORMATION
  Report Type: Spontaneous
  Country: GB (occurrence: GB)
  Receive Date: 20200127
  Receipt Date: 20200127
  Transmission Date: 20200409
  Serious: Yes (Other)
  Sender: FDA-Public Use
  Company Number: ALC2020GB000796

PATIENT

DRUGS (2)
  1. KELP [IODINE] [Concomitant]
     Indication: PRODUCT USED FOR UNKNOWN INDICATION
     Route: 065
  2. TROPICAMIDE. [Suspect]
     Active Substance: TROPICAMIDE
     Indication: PRODUCT USED FOR UNKNOWN INDICATION
     Dosage: INSTILLED IN EACH EYE(1/12 MILLILITRE)
     Route: 047

REACTIONS (2)
  - Asthenopia [Not Recovered/Not Resolved]
  - Sleep disorder [Not Recovered/Not Resolved]
